FAERS Safety Report 7205418-X (Version None)
Quarter: 2010Q4

REPORT INFORMATION
  Report Type: 
  Country: None (occurrence: None)
  Receive Date: 20101231
  Receipt Date: 20101220
  Transmission Date: 20110411
  Serious: Yes (Hospitalization)
  Sender: FDA-Public Use
  Company Number: PHFR2010GB05745

PATIENT
  Sex: Male

DRUGS (8)
  1. CLOZARIL [Suspect]
     Indication: SCHIZOPHRENIA
     Dosage: UNK
     Route: 048
     Dates: start: 19920220
  2. AMOXICILLIN [Concomitant]
     Dosage: 250 MG, TID FOR7 DAYS
     Route: 048
  3. CITALOPRAM [Concomitant]
     Dosage: 20MG/DAY
     Route: 048
     Dates: start: 20101029
  4. AMLODIPINE [Concomitant]
     Dosage: UNK
     Route: 048
     Dates: start: 20101029
  5. RAMIPRIL [Concomitant]
     Dosage: UNK
     Route: 048
     Dates: start: 20101029
  6. SIMVASTATIN [Concomitant]
     Dosage: 40MG/DAY
     Route: 048
     Dates: start: 20101029
  7. NOVOMIX 30 [Concomitant]
     Dosage: 3,8/28U
     Route: 058
     Dates: start: 20101029
  8. BENDROFLUAZIDE [Concomitant]
     Dosage: 2.5MG/DAY
     Route: 048
     Dates: start: 20101029

REACTIONS (2)
  - PYREXIA [None]
  - UPPER RESPIRATORY TRACT INFECTION [None]
